FAERS Safety Report 16835084 (Version 2)
Quarter: 2021Q4

REPORT INFORMATION
  Report Type: Report from Study
  Country: DE (occurrence: DE)
  Receive Date: 20190920
  Receipt Date: 20211122
  Transmission Date: 20220303
  Serious: Yes (Other)
  Sender: FDA-Public Use
  Company Number: DE-ACCORD-124947

PATIENT

DRUGS (1)
  1. PEGFILGRASTIM [Suspect]
     Active Substance: PEGFILGRASTIM
     Indication: Prophylaxis
     Dosage: 6 MILLIGRAM, QD
     Route: 058
     Dates: start: 20190411, end: 20190411

REACTIONS (2)
  - Leukopenia [Not Recovered/Not Resolved]
  - Thrombocytopenia [Not Recovered/Not Resolved]

NARRATIVE: CASE EVENT DATE: 20190415
